FAERS Safety Report 9734010 (Version 2)
Quarter: 2013Q4

REPORT INFORMATION
  Report Type: Spontaneous
  Country: US (occurrence: US)
  Receive Date: 20131205
  Receipt Date: 20131231
  Transmission Date: 20140711
  Serious: No
  Sender: FDA-Public Use
  Company Number: US-PFIZER INC-2013347421

PATIENT
  Age: 63 Year
  Sex: Female
  Weight: 86.17 kg

DRUGS (5)
  1. LYRICA [Suspect]
     Indication: NERVE INJURY
     Dosage: 75 MG, 3X/DAY
     Route: 048
     Dates: start: 201304, end: 201306
  2. LYRICA [Suspect]
     Indication: NEURALGIA
     Dosage: 75 MG, 3X/DAY
     Route: 048
     Dates: start: 201311
  3. TRAMADOL HYDROCHLORIDE [Suspect]
     Indication: NERVE INJURY
     Dosage: UNK
     Dates: start: 2013, end: 201311
  4. TRAMADOL HYDROCHLORIDE [Suspect]
     Indication: NEURALGIA
  5. WELLBUTRIN [Concomitant]
     Dosage: UNK

REACTIONS (2)
  - Off label use [Unknown]
  - Drug ineffective [Unknown]
